FAERS Safety Report 14501870 (Version 1)
Quarter: 2018Q1

REPORT INFORMATION
  Report Type: Spontaneous
  Country: GB (occurrence: GB)
  Receive Date: 20180207
  Receipt Date: 20180207
  Transmission Date: 20180509
  Serious: Yes (Other)
  Sender: FDA-Public Use
  Company Number: GB-BAXTER-2018BAX004084

PATIENT
  Age: 16 Year
  Sex: Female

DRUGS (11)
  1. WARFARIN [Suspect]
     Active Substance: WARFARIN
     Indication: DEEP VEIN THROMBOSIS
     Route: 048
  2. ETOPOSIDE. [Concomitant]
     Active Substance: ETOPOSIDE
     Indication: OVARIAN GERM CELL ENDODERMAL SINUS TUMOUR
     Dosage: IN 1 LITRE OF NORMAL SALINE
     Route: 041
  3. IFOSFAMIDE INJECTION 2G [Suspect]
     Active Substance: IFOSFAMIDE
     Indication: OVARIAN GERM CELL ENDODERMAL SINUS TUMOUR
     Dosage: DISSOLVED IN 3 LITERS OF DEXTROSE SALINE EACH LITER OVER A TIME PERIOD OF 8 HOURS.
     Route: 041
  4. NORMAL SALINE [Concomitant]
     Active Substance: SODIUM CHLORIDE
     Dosage: WITH CISPLATIN DOSE
     Route: 042
  5. DOMPERIDONE [Concomitant]
     Active Substance: DOMPERIDONE
     Indication: PRODUCT USED FOR UNKNOWN INDICATION
     Route: 048
  6. LORAZEPAM. [Concomitant]
     Active Substance: LORAZEPAM
     Indication: PRODUCT USED FOR UNKNOWN INDICATION
     Route: 048
  7. DEXTROSE SALINE [Concomitant]
     Active Substance: DEXTROSE\SODIUM CHLORIDE
     Indication: MEDICATION DILUTION
     Dosage: IFOSFAMIDE/MESNA WITH DOSES OF 3 G/M2 IN 3 LITERS OF DEXTROSE SOLUTION OVER 8 HOURS.
     Route: 041
  8. CISPLATIN. [Concomitant]
     Active Substance: CISPLATIN
     Indication: OVARIAN GERM CELL ENDODERMAL SINUS TUMOUR
     Dosage: IN 1 LITRE OF NORMAL SALINE
     Route: 041
  9. NABILONE [Concomitant]
     Active Substance: NABILONE
     Indication: PRODUCT USED FOR UNKNOWN INDICATION
     Route: 048
  10. MESNA. [Suspect]
     Active Substance: MESNA
     Indication: PRODUCT USED FOR UNKNOWN INDICATION
     Dosage: DISSOLVED IN 3 LITERS OF DEXTROSE SALINE EACH LITER OVER A TIME PERIOD OF 8 HOURS.
     Route: 041
  11. NORMAL SALINE [Concomitant]
     Active Substance: SODIUM CHLORIDE
     Indication: MEDICATION DILUTION
     Dosage: WITH ETOPOSIDE DOSE
     Route: 041

REACTIONS (2)
  - International normalised ratio increased [Unknown]
  - Drug interaction [Unknown]
